FAERS Safety Report 12976643 (Version 3)
Quarter: 2017Q1

REPORT INFORMATION
  Report Type: Report from Study
  Country: ES (occurrence: ES)
  Receive Date: 20161127
  Receipt Date: 20170215
  Transmission Date: 20170428
  Serious: Yes (Life-Threatening, Hospitalization)
  Sender: FDA-Public Use
  Company Number: ES-ROCHE-1854512

PATIENT
  Age: 77 Year
  Sex: Male
  Weight: 83.5 kg

DRUGS (7)
  1. OBINUTUZUMAB [Suspect]
     Active Substance: OBINUTUZUMAB
     Indication: CHRONIC LYMPHOCYTIC LEUKAEMIA
     Dosage: LAST DOSE PRIOR TO EVENT: 02/NOV/2015?CYCLE ONE TO CYCLE 6
     Route: 042
     Dates: start: 20150615
  2. SIMVASTATIN. [Concomitant]
     Active Substance: SIMVASTATIN
     Route: 065
  3. RAMIPRIL. [Concomitant]
     Active Substance: RAMIPRIL
     Route: 065
  4. PARACETAMOL [Concomitant]
     Active Substance: ACETAMINOPHEN
     Indication: PROCEDURAL PAIN
     Route: 048
     Dates: start: 20161027
  5. METAMIZOL [Concomitant]
     Active Substance: METAMIZOLE SODIUM
     Indication: PROCEDURAL PAIN
     Route: 048
     Dates: start: 20161027
  6. ATENOLOL. [Concomitant]
     Active Substance: ATENOLOL
     Route: 065
  7. IBRUTINIB [Suspect]
     Active Substance: IBRUTINIB
     Indication: CHRONIC LYMPHOCYTIC LEUKAEMIA
     Dosage: LAST DOSE PRIOR TO EVENT: 16/OCT/2016?ON 17/OCT/2016 THERAPY STOPPED. ON 10/NOV/2016, THERAPY RESTAR
     Route: 048
     Dates: start: 20160615

REACTIONS (2)
  - Squamous cell carcinoma [Recovered/Resolved]
  - Renal neoplasm [Recovered/Resolved]

NARRATIVE: CASE EVENT DATE: 20160915
